FAERS Safety Report 23166740 (Version 3)
Quarter: 2024Q4

REPORT INFORMATION
  Report Type: Spontaneous
  Country: ZA (occurrence: ZA)
  Receive Date: 20231109
  Receipt Date: 20241010
  Transmission Date: 20250115
  Serious: Yes (Other)
  Sender: PFIZER
  Company Number: ZA-PFIZER INC-202300355917

PATIENT
  Age: 19 Year
  Sex: Female

DRUGS (3)
  1. METHOTREXATE SODIUM [Suspect]
     Active Substance: METHOTREXATE SODIUM
     Dosage: 15 MG, WEEKLY
     Dates: start: 201810
  2. CHLOROQUINE [Suspect]
     Active Substance: CHLOROQUINE
     Dosage: 200 MG, DAILY
     Dates: start: 201806, end: 201911
  3. PREDNISONE [Suspect]
     Active Substance: PREDNISONE
     Dosage: 5 MG, DAILY
     Dates: start: 201810, end: 201907

REACTIONS (5)
  - Osteoporosis [Unknown]
  - Osteoporotic fracture [Unknown]
  - Joint dislocation [Unknown]
  - Joint swelling [Unknown]
  - Bone pain [Unknown]

NARRATIVE: CASE EVENT DATE: 20190701
